FAERS Safety Report 7687489-X (Version None)
Quarter: 2011Q3

REPORT INFORMATION
  Report Type: 
  Country: None (occurrence: None)
  Receive Date: 20110817
  Receipt Date: 20110810
  Transmission Date: 20111222
  Serious: Yes (Hospitalization)
  Sender: FDA-Public Use
  Company Number: US-BIOGENIDEC-2009BI032727

PATIENT
  Age: 38 Year
  Sex: Male
  Weight: 114 kg

DRUGS (9)
  1. AMANTADINE HCL [Concomitant]
     Indication: FATIGUE
  2. TYSABRI [Suspect]
     Route: 042
     Dates: start: 20080922
  3. ARICEPT [Concomitant]
     Indication: COGNITIVE DISORDER
  4. TRAZODONE HCL [Concomitant]
     Indication: SLEEP DISORDER
  5. TYSABRI [Suspect]
     Indication: MULTIPLE SCLEROSIS
     Route: 042
     Dates: start: 20070131, end: 20080509
  6. PROVIGIL [Concomitant]
     Indication: FATIGUE
     Route: 048
  7. NEXIUM [Concomitant]
     Indication: GASTROOESOPHAGEAL REFLUX DISEASE
  8. PROZAC [Concomitant]
     Indication: DEPRESSION
  9. TYLENOL-500 [Concomitant]
     Indication: HEADACHE

REACTIONS (3)
  - FATIGUE [None]
  - MULTIPLE SCLEROSIS RELAPSE [None]
  - GAIT DISTURBANCE [None]
